FAERS Safety Report 7787789-9 (Version None)
Quarter: 2011Q3

REPORT INFORMATION
  Report Type: 
  Country: None (occurrence: None)
  Receive Date: 20110930
  Receipt Date: 20110923
  Transmission Date: 20111222
  Serious: Yes (Other)
  Sender: FDA-Public Use
  Company Number: US-BRISTOL-MYERS SQUIBB COMPANY-16094948

PATIENT
  Age: 68 Year
  Sex: Male

DRUGS (3)
  1. LANTUS [Suspect]
     Indication: TYPE 2 DIABETES MELLITUS
     Dosage: 1 DOSAGE FORM = 24 UNITS. PARENTERAL INJ 100IU/ML; 0F534A,EXP:30APR13; 24-26UNITS DAILY
     Route: 058
     Dates: start: 20091201
  2. METFORMIN HCL [Suspect]
     Route: 048
  3. GLYBURIDE [Suspect]
     Route: 048

REACTIONS (2)
  - BLOOD GLUCOSE INCREASED [None]
  - DIABETIC NEUROPATHY [None]
